FAERS Safety Report 7033907-X (Version None)
Quarter: 2010Q4

REPORT INFORMATION
  Report Type: 
  Country: None (occurrence: None)
  Receive Date: 20101005
  Receipt Date: 20100922
  Transmission Date: 20110411
  Serious: Yes (Other)
  Sender: FDA-Public Use
  Company Number: 017352

PATIENT
  Sex: Female

DRUGS (1)
  1. KEPPRA [Suspect]
     Dosage: (TAPERED DOWN OFF)

REACTIONS (5)
  - CONFUSIONAL STATE [None]
  - DYSPHORIA [None]
  - FATIGUE [None]
  - HYPERSOMNIA [None]
  - QUALITY OF LIFE DECREASED [None]
